FAERS Safety Report 13211089 (Version 1)
Quarter: 2017Q1

REPORT INFORMATION
  Report Type: Spontaneous
  Country: US (occurrence: US)
  Receive Date: 20170210
  Receipt Date: 20170210
  Transmission Date: 20170428
  Serious: No
  Sender: FDA-Public Use
  Company Number: US-PFIZER INC-2017054592

PATIENT
  Sex: Female

DRUGS (1)
  1. IBRANCE [Suspect]
     Active Substance: PALBOCICLIB
     Indication: NEOPLASM
     Dosage: UNK

REACTIONS (5)
  - Peripheral swelling [Unknown]
  - Neoplasm progression [Unknown]
  - Intra-abdominal fluid collection [Unknown]
  - Fatigue [Unknown]
  - Joint swelling [Unknown]
